FAERS Safety Report 13295894 (Version 3)
Quarter: 2017Q3

REPORT INFORMATION
  Report Type: Spontaneous
  Country: IT (occurrence: IT)
  Receive Date: 20170303
  Receipt Date: 20170714
  Transmission Date: 20171127
  Serious: No
  Sender: FDA-Public Use
  Company Number: IT-GILEAD-2017-0260517

PATIENT
  Age: 56 Year
  Sex: Male

DRUGS (4)
  1. RIBAVIRIN. [Suspect]
     Active Substance: RIBAVIRIN
     Indication: CHRONIC HEPATITIS C
     Dosage: UNK
     Route: 065
     Dates: start: 201512
  2. EMTRICITABINE/TENOFOVIR DF [Concomitant]
     Active Substance: EMTRICITABINE
     Indication: HIV INFECTION
  3. DARUNAVIR W/RITONAVIR [Concomitant]
     Active Substance: DARUNAVIR\RITONAVIR
     Indication: HIV INFECTION
     Dosage: 1 DF, UNK
  4. HARVONI [Suspect]
     Active Substance: LEDIPASVIR\SOFOSBUVIR
     Indication: CHRONIC HEPATITIS C
     Dosage: UNK
     Route: 065
     Dates: start: 201512

REACTIONS (3)
  - Herpes zoster [Recovered/Resolved]
  - Neuralgia [Unknown]
  - Immune-mediated adverse reaction [Recovered/Resolved]
